FAERS Safety Report 16282121 (Version 1)
Quarter: 2019Q2

REPORT INFORMATION
  Report Type: Spontaneous
  Country: DE (occurrence: DE)
  Receive Date: 20190507
  Receipt Date: 20190507
  Transmission Date: 20190711
  Serious: Yes (Other)
  Sender: FDA-Public Use
  Company Number: PHHY2019DE102747

PATIENT
  Sex: Female

DRUGS (1)
  1. CLARITHROMYCIN 1A PHARMA [Suspect]
     Active Substance: CLARITHROMYCIN
     Indication: PRODUCT USED FOR UNKNOWN INDICATION
     Dosage: 2 DF, QD
     Route: 065

REACTIONS (3)
  - Dizziness [Unknown]
  - Breast pain [Unknown]
  - Circulatory collapse [Unknown]
